FAERS Safety Report 7775253-2 (Version None)
Quarter: 2011Q3

REPORT INFORMATION
  Report Type: 
  Country: None (occurrence: None)
  Receive Date: 20110923
  Receipt Date: 20110722
  Transmission Date: 20111222
  Serious: Yes (Other)
  Sender: FDA-Public Use
  Company Number: US-BRISTOL-MYERS SQUIBB COMPANY-15921703

PATIENT
  Age: 24 Year
  Sex: Male

DRUGS (2)
  1. MEGACE [Suspect]
     Indication: WEIGHT INCREASED
     Dosage: 40 MG IN MORNING AND AT NIGHT
  2. LAMICTAL [Concomitant]

REACTIONS (3)
  - ADRENAL INSUFFICIENCY [None]
  - RESPIRATORY TRACT INFECTION [None]
  - SWELLING FACE [None]
